FAERS Safety Report 18943602 (Version 2)
Quarter: 2021Q1

REPORT INFORMATION
  Report Type: Spontaneous
  Country: JP (occurrence: JP)
  Receive Date: 20210226
  Receipt Date: 20210303
  Transmission Date: 20210420
  Serious: No
  Sender: FDA-Public Use
  Company Number: JP-ORGANON-2102JPN004414

PATIENT
  Age: 55 Year
  Sex: Female

DRUGS (4)
  1. FLUTIFORM [Concomitant]
     Active Substance: FLUTICASONE PROPIONATE\FORMOTEROL FUMARATE
     Dosage: (125 UNITS UNKNOWN) 4 DOSAGE FORM
     Dates: start: 20210115
  2. IBUPROFEN. [Concomitant]
     Active Substance: IBUPROFEN
     Dosage: OVER THE COUNTER (OTC)
     Route: 048
  3. MONTELUKAST SODIUM. [Suspect]
     Active Substance: MONTELUKAST SODIUM
     Indication: ASTHMA
     Dosage: DAILY DOSE: 10 MILLIGRAM
     Route: 048
     Dates: start: 20210115
  4. RELPAX [Concomitant]
     Active Substance: ELETRIPTAN HYDROBROMIDE
     Dosage: UNK
     Route: 048

REACTIONS (1)
  - Abdominal discomfort [Recovering/Resolving]

NARRATIVE: CASE EVENT DATE: 20210119
